FAERS Safety Report 5635739-3 (Version None)
Quarter: 2008Q1

REPORT INFORMATION
  Report Type: 
  Country: None (occurrence: None)
  Receive Date: 20080220
  Receipt Date: 20080206
  Transmission Date: 20080703
  Serious: Yes (Hospitalization)
  Sender: FDA-Public Use
  Company Number: DSM-2008-00165

PATIENT
  Sex: Female

DRUGS (5)
  1. IXIA (OLMESARTAN MEDOXOMIL) (TABLET) (OLMESARTAN MEDOXOMIL) [Suspect]
     Indication: HYPERTENSION
     Dosage: 20 MG (20 MG, 1 IN 1 D), ORAL
     Route: 048
     Dates: start: 20070101, end: 20071121
  2. EURADAL (BISOPROLOL FUMARATE) (BISOPROLOL FUMARATE) [Suspect]
     Dosage: 20 MG (20 MG, 1 IN 1 D), ORAL
     Route: 048
     Dates: start: 20070101, end: 20071121
  3. OSTEOPOR (DURAPATITE) (DURAPATITE) [Concomitant]
  4. ORFIDAL (LORAZEPAM) (LORAZEPAM) [Concomitant]
  5. SIMVASTATINA DAVUR (SIMVASTATIN) (SIMVASTATIN) [Concomitant]

REACTIONS (5)
  - DIZZINESS [None]
  - HYPOTENSION [None]
  - LOSS OF CONSCIOUSNESS [None]
  - NAUSEA [None]
  - VOMITING [None]
